FAERS Safety Report 8386037-9 (Version None)
Quarter: 2012Q2

REPORT INFORMATION
  Report Type: 
  Country: None (occurrence: None)
  Receive Date: 20120525
  Receipt Date: 20120517
  Transmission Date: 20120825
  Serious: Yes (Death, Life-Threatening, Other)
  Sender: FDA-Public Use
  Company Number: JP-GENZYME-THYM-1001633

PATIENT
  Sex: Male
  Weight: 35 kg

DRUGS (24)
  1. SOLUTIONS FOR PARENTERAL NUTRITION [Concomitant]
     Indication: NUTRITIONAL SUPPORT
     Dosage: UNK
     Dates: start: 20090624, end: 20090712
  2. MULTI-VITAMIN [Concomitant]
     Indication: NUTRITIONAL SUPPORT
     Dosage: UNK
     Dates: start: 20090626, end: 20090712
  3. RINGER-ACETAT [Concomitant]
     Indication: FLUID REPLACEMENT
     Dosage: UNK
     Dates: start: 20090626, end: 20090629
  4. POTASSIUM MAGNESIUM ASPARTATE [Concomitant]
     Indication: HYPOKALAEMIA
     Dosage: UNK
     Dates: start: 20090701, end: 20090702
  5. POTASSIUM CHLORIDE [Concomitant]
     Indication: HYPOKALAEMIA
     Dosage: UNK
     Dates: start: 20090629, end: 20090630
  6. THYMOGLOBULIN [Suspect]
     Indication: PREMEDICATION
     Dosage: 87.5 MG, QD
     Route: 042
     Dates: start: 20090626, end: 20090629
  7. MANGANESE CHLORIDE [Concomitant]
     Indication: NUTRITIONAL SUPPORT
     Dosage: UNK
     Dates: start: 20090626, end: 20090712
  8. SOLUTIONS FOR PARENTERAL NUTRITION [Concomitant]
     Indication: FLUID REPLACEMENT
  9. MESNA [Concomitant]
     Indication: HAEMORRHAGE PROPHYLAXIS
     Dosage: UNK
     Dates: start: 20090626, end: 20090629
  10. HYDROCORTISONE SODIUM SUCCINATE [Concomitant]
     Indication: ANAPHYLAXIS PROPHYLAXIS
     Dosage: UNK
     Dates: start: 20090701, end: 20090701
  11. TACROLIMUS [Concomitant]
     Indication: PROPHYLAXIS AGAINST GRAFT VERSUS HOST DISEASE
     Dosage: UNK
     Dates: start: 20090630, end: 20090710
  12. CARBAZOCHROME SODIUM SULFONATE [Concomitant]
     Indication: GASTRIC HAEMORRHAGE
     Dosage: UNK
     Dates: start: 20090708, end: 20090711
  13. ALBUMIN (HUMAN) [Concomitant]
     Indication: HYPOPROTEINAEMIA
     Dosage: UNK
     Dates: start: 20090704, end: 20090705
  14. CYTOXAN [Concomitant]
     Indication: PREMEDICATION
     Dosage: UNK
     Dates: start: 20090626, end: 20090629
  15. IMMUNE GLOBULIN NOS [Concomitant]
     Indication: ANTIVIRAL PROPHYLAXIS
     Dosage: UNK
     Dates: start: 20090625, end: 20090625
  16. SODIUM CHLORIDE [Concomitant]
     Indication: HYPONATRAEMIA
     Dosage: UNK
     Dates: start: 20090701, end: 20090702
  17. METHOTREXATE [Concomitant]
     Indication: PROPHYLAXIS AGAINST GRAFT VERSUS HOST DISEASE
     Dosage: UNK
     Dates: start: 20090702, end: 20090707
  18. FAMOTIDINE [Concomitant]
     Indication: PEPTIC ULCER
     Dosage: UNK
     Dates: start: 20090630, end: 20090706
  19. GLYCYRRHIZIN GLYCINE CYSTEINE [Concomitant]
     Indication: LIVER DISORDER
     Dosage: UNK
     Dates: start: 20090705, end: 20090711
  20. HEPARIN [Concomitant]
     Indication: PROPHYLAXIS
     Dosage: UNK
     Dates: start: 20090626, end: 20090712
  21. RAMOSETRON HYDROCHLORIDE [Concomitant]
     Indication: PROPHYLAXIS OF NAUSEA AND VOMITING
     Dosage: UNK
     Dates: start: 20090625, end: 20090629
  22. METHYLPEDNISOLONE SODIUM SUCCINATE [Concomitant]
     Indication: PREMEDICATION
     Dosage: UNK
     Dates: start: 20090626, end: 20090629
  23. CARBAZOCHROME SODIUM SULFONATE [Concomitant]
     Indication: HAEMATURIA
  24. PENTAMIDINE ISETHIONATE [Concomitant]
     Indication: ANTIFUNGAL PROPHYLAXIS
     Dosage: UNK
     Dates: start: 20090709, end: 20090709

REACTIONS (34)
  - CARDIAC ARREST [None]
  - PNEUMONIA [None]
  - HYPONATRAEMIA [None]
  - PYREXIA [None]
  - OLIGURIA [None]
  - PEPTIC ULCER [None]
  - MULTI-ORGAN FAILURE [None]
  - DISSEMINATED INTRAVASCULAR COAGULATION [None]
  - CARDIAC FAILURE [None]
  - SEPSIS [None]
  - NEUTROPHIL COUNT DECREASED [None]
  - INTERSTITIAL LUNG DISEASE [None]
  - ABDOMINAL PAIN [None]
  - WHITE BLOOD CELL COUNT DECREASED [None]
  - HEADACHE [None]
  - CHILLS [None]
  - ENGRAFTMENT SYNDROME [None]
  - TOXICITY TO VARIOUS AGENTS [None]
  - OEDEMA [None]
  - HYPOPROTEINAEMIA [None]
  - THROMBOTIC MICROANGIOPATHY [None]
  - PAIN [None]
  - LYMPHOCYTE COUNT DECREASED [None]
  - HYPOKALAEMIA [None]
  - HAEMATURIA [None]
  - SHOCK [None]
  - PULMONARY OEDEMA [None]
  - VOMITING [None]
  - PLATELET COUNT DECREASED [None]
  - ACUTE RESPIRATORY DISTRESS SYNDROME [None]
  - GASTROINTESTINAL HAEMORRHAGE [None]
  - CIRCULATORY COLLAPSE [None]
  - DIARRHOEA [None]
  - DRUG-INDUCED LIVER INJURY [None]
